FAERS Safety Report 4345920-1 (Version None)
Quarter: 2004Q2

REPORT INFORMATION
  Report Type: 
  Country: None (occurrence: None)
  Receive Date: 20040420
  Receipt Date: 20040406
  Transmission Date: 20050107
  Serious: Yes (Hospitalization, Other)
  Sender: FDA-Public Use
  Company Number: 230016M04GBR

PATIENT
  Age: 26 Year
  Sex: Female

DRUGS (9)
  1. REBIF [Suspect]
     Indication: MULTIPLE SCLEROSIS
     Dosage: 22 MCG, 3 IN 1 WEEKS, SUBCUTANEOUS
     Route: 058
     Dates: start: 20040323
  2. GABAPENTIN [Concomitant]
  3. MODAFINIL [Concomitant]
  4. METFORMIN HCL [Concomitant]
  5. HYDROXYZINE HYDROCHLORIDE [Concomitant]
  6. ZOPICLONE [Concomitant]
  7. FEXOFENADINE HCL [Concomitant]
  8. ACETAMINOPHEN [Concomitant]
  9. IBUPROFEN [Concomitant]

REACTIONS (7)
  - CHEST DISCOMFORT [None]
  - INJECTION SITE ERYTHEMA [None]
  - INJECTION SITE REACTION [None]
  - PAIN [None]
  - RASH GENERALISED [None]
  - RASH PRURITIC [None]
  - SWELLING FACE [None]
